FAERS Safety Report 8222053-5 (Version None)
Quarter: 2012Q1

REPORT INFORMATION
  Report Type: 
  Country: None (occurrence: None)
  Receive Date: 20120314
  Receipt Date: 20120302
  Transmission Date: 20120608
  Serious: Yes (Disabling, Other)
  Sender: FDA-Public Use
  Company Number: 2012SA014603

PATIENT
  Age: 43 Year
  Sex: Male

DRUGS (1)
  1. ICY HOT NO MESS / UNKNOWN / UNKNOWN [Suspect]
     Dosage: UNKNOWN;TOPICAL
     Route: 061

REACTIONS (2)
  - THERMAL BURN [None]
  - BLISTER [None]
